FAERS Safety Report 9240726 (Version 1)
Quarter: 2013Q1

REPORT INFORMATION
  Report Type: Spontaneous
  Country: US (occurrence: None)
  Receive Date: 20121120
  Receipt Date: 20121120
  Transmission Date: 20140127
  Serious: No
  Sender: FDA-Public Use
  Company Number: 1000037561

PATIENT
  Age: 58 Year
  Sex: Male

DRUGS (4)
  1. VIIBRYD [Suspect]
     Indication: ANXIETY
     Route: 048
     Dates: start: 201207, end: 201207
  2. ATORVASTATIN(ATORVASTATIN)(ATORVASTATIN) [Concomitant]
  3. LEVOTHYROXINE(LEVOTHYROXINE SODIUM)(LEVOTHYROXINE SODIUM) [Concomitant]
  4. ZEGERID(OMEPRAZOLE)(OMEPRAZOLE) [Concomitant]

REACTIONS (2)
  - Tinnitus [None]
  - Off label use [None]
